FAERS Safety Report 11264113 (Version 5)
Quarter: 2015Q4

REPORT INFORMATION
  Report Type: Spontaneous
  Country: US (occurrence: US)
  Receive Date: 20150713
  Receipt Date: 20151204
  Transmission Date: 20160304
  Serious: No
  Sender: FDA-Public Use
  Company Number: US-JNJFOC-20150614296

PATIENT
  Sex: Male

DRUGS (15)
  1. RISPERDAL CONSTA [Suspect]
     Active Substance: RISPERIDONE
     Indication: BIPOLAR I DISORDER
     Route: 030
     Dates: start: 20100326
  2. RISPERDAL [Suspect]
     Active Substance: RISPERIDONE
     Indication: PSYCHOTIC DISORDER
     Dosage: 1.5 MG
     Route: 048
     Dates: start: 201002
  3. RISPERIDONE. [Suspect]
     Active Substance: RISPERIDONE
     Indication: BIPOLAR I DISORDER
     Route: 048
     Dates: start: 2010, end: 2014
  4. ABILIFY [Suspect]
     Active Substance: ARIPIPRAZOLE
     Indication: BIPOLAR I DISORDER
     Route: 030
     Dates: start: 201003
  5. RISPERDAL [Suspect]
     Active Substance: RISPERIDONE
     Indication: DRUG THERAPY
     Dosage: 1.5 MG
     Route: 048
     Dates: start: 201002
  6. RISPERDAL [Suspect]
     Active Substance: RISPERIDONE
     Indication: BIPOLAR I DISORDER
     Dosage: 1.5 MG
     Route: 048
     Dates: start: 201002
  7. RISPERDAL M-TAB [Suspect]
     Active Substance: RISPERIDONE
     Indication: BIPOLAR I DISORDER
     Dosage: 1MG
     Route: 048
  8. ALBUTEROL. [Concomitant]
     Active Substance: ALBUTEROL
     Indication: PRODUCT USED FOR UNKNOWN INDICATION
  9. INVEGA [Suspect]
     Active Substance: PALIPERIDONE
     Indication: BIPOLAR I DISORDER
     Route: 048
     Dates: start: 2012
  10. HALDOL [Suspect]
     Active Substance: HALOPERIDOL
     Indication: BIPOLAR I DISORDER
     Route: 030
     Dates: start: 2012
  11. HALDOL [Suspect]
     Active Substance: HALOPERIDOL
     Indication: BIPOLAR I DISORDER
     Route: 030
     Dates: start: 2014
  12. RISPERDAL M-TAB [Suspect]
     Active Substance: RISPERIDONE
     Indication: DRUG THERAPY
     Dosage: 1MG
     Route: 048
  13. HALDOL [Suspect]
     Active Substance: HALOPERIDOL
     Indication: BIPOLAR I DISORDER
     Route: 030
     Dates: start: 201003
  14. SEROQUEL [Suspect]
     Active Substance: QUETIAPINE FUMARATE
     Indication: BIPOLAR I DISORDER
     Route: 065
     Dates: start: 201003
  15. DEPAKOTE [Concomitant]
     Active Substance: DIVALPROEX SODIUM
     Indication: PRODUCT USED FOR UNKNOWN INDICATION
     Route: 065
     Dates: start: 2014

REACTIONS (4)
  - Gynaecomastia [Unknown]
  - Depression [Unknown]
  - Weight increased [Unknown]
  - Akathisia [Unknown]
